FAERS Safety Report 10657397 (Version 2)
Quarter: 2019Q1

REPORT INFORMATION
  Report Type: Other
  Country: US (occurrence: US)
  Receive Date: 20141215
  Receipt Date: 20190207
  Transmission Date: 20190417
  Serious: Yes (Other)
  Sender: FDA-Public Use
  Company Number: US-ALSI-201400249

PATIENT
  Age: 31 Year
  Sex: Male

DRUGS (3)
  1. NITROUS OXIDE. [Suspect]
     Active Substance: NITROUS OXIDE
     Route: 055
  2. OXYGEN. [Concomitant]
     Active Substance: OXYGEN
  3. NITROUS OXIDE. [Suspect]
     Active Substance: NITROUS OXIDE
     Indication: DRUG DEPENDENCE
     Route: 055

REACTIONS (2)
  - Occupational exposure to product [Recovering/Resolving]
  - Subacute combined cord degeneration [Recovering/Resolving]
